FAERS Safety Report 7617721-X (Version None)
Quarter: 2011Q3

REPORT INFORMATION
  Report Type: 
  Country: None (occurrence: None)
  Receive Date: 20110718
  Receipt Date: 20110714
  Transmission Date: 20111222
  Serious: Yes (Death)
  Sender: FDA-Public Use
  Company Number: US-ASTELLAS-2011US003894

PATIENT
  Sex: Male

DRUGS (1)
  1. ERLOTINIB HYDROCHLORIDE [Suspect]
     Indication: PANCREATIC CARCINOMA
     Dosage: 75 MG, UID/QD
     Route: 048
     Dates: start: 20110608

REACTIONS (2)
  - METASTATIC NEOPLASM [None]
  - CARDIOPULMONARY FAILURE [None]
